FAERS Safety Report 8276372-7 (Version None)
Quarter: 2012Q2

REPORT INFORMATION
  Report Type: 
  Country: None (occurrence: None)
  Receive Date: 20120412
  Receipt Date: 20120403
  Transmission Date: 20120825
  Serious: Yes (Death, Life-Threatening, Hospitalization)
  Sender: FDA-Public Use
  Company Number: RU-JNJFOC-20120102818

PATIENT
  Sex: Male
  Weight: 85 kg

DRUGS (4)
  1. ABIRATERONE ACETATE [Suspect]
     Indication: PROSTATE CANCER METASTATIC
     Route: 048
     Dates: start: 20111111, end: 20120104
  2. PREDNISOLONE [Suspect]
     Indication: PROSTATE CANCER METASTATIC
     Route: 048
     Dates: start: 20111111, end: 20120104
  3. ABIRATERONE ACETATE [Suspect]
     Route: 048
  4. PREDNISOLONE [Suspect]
     Route: 048
     Dates: start: 20120104

REACTIONS (2)
  - MULTI-ORGAN FAILURE [None]
  - DISEASE PROGRESSION [None]
